FAERS Safety Report 8598936-3 (Version None)
Quarter: 2012Q3

REPORT INFORMATION
  Report Type: 
  Country: None (occurrence: None)
  Receive Date: 20120816
  Receipt Date: 20120808
  Transmission Date: 20120928
  Serious: Yes (Death, Life-Threatening, Hospitalization)
  Sender: FDA-Public Use
  Company Number: LB-CELGENEUS-093-20785-11122118

PATIENT
  Age: 81 Year
  Sex: Female

DRUGS (5)
  1. ASPICOT [Concomitant]
     Indication: THROMBOSIS PROPHYLAXIS
     Route: 065
  2. OMEPRAZOLE [Concomitant]
     Route: 065
  3. TRAMADOL HCL [Concomitant]
     Route: 065
  4. CALCIUM [Concomitant]
     Route: 065
  5. THALIDOMIDE [Suspect]
     Indication: MULTIPLE MYELOMA
     Route: 048
     Dates: start: 20101201, end: 20110801

REACTIONS (3)
  - ACUTE MYOCARDIAL INFARCTION [None]
  - CHOLECYSTITIS ACUTE [None]
  - SEPSIS [None]
